FAERS Safety Report 9010148 (Version 1)
Quarter: 2013Q1

REPORT INFORMATION
  Report Type: Spontaneous
  Country: US (occurrence: US)
  Receive Date: 20130110
  Receipt Date: 20130110
  Transmission Date: 20140127
  Serious: Yes (Death)
  Sender: FDA-Public Use
  Company Number: PHEH2013US000904

PATIENT
  Age: 74 Year
  Sex: Male

DRUGS (3)
  1. AFINITOR [Suspect]
     Indication: RENAL CANCER
     Dosage: 5 MG, QD
     Route: 048
  2. LIPITOR [Concomitant]
     Dosage: 10 MG, UNK
  3. CELEXA [Concomitant]
     Dosage: 10 MG, UNK

REACTIONS (1)
  - Death [Fatal]
